FAERS Safety Report 6697466-3 (Version None)
Quarter: 2010Q2

REPORT INFORMATION
  Report Type: 
  Country: None (occurrence: None)
  Receive Date: 20100422
  Receipt Date: 20100408
  Transmission Date: 20101027
  Serious: Yes (Hospitalization)
  Sender: FDA-Public Use
  Company Number: CLOF-1000816

PATIENT
  Age: 64 Year
  Sex: Female
  Weight: 100.2 kg

DRUGS (8)
  1. CLOFARABINE OR PLACEBO (CODE NOT BROKEN) [Suspect]
     Indication: ACUTE MYELOID LEUKAEMIA
     Dosage: BLINDED, INFORMATION WITHHELD
     Dates: start: 20091005, end: 20091009
  2. CLOFARABINE OR PLACEBO (CODE NOT BROKEN) [Suspect]
     Indication: ACUTE MYELOID LEUKAEMIA
     Dosage: BLINDED, INFORMATION WITHHELD
     Dates: start: 20091028, end: 20091101
  3. CLOFARABINE OR PLACEBO (CODE NOT BROKEN) [Suspect]
     Indication: ACUTE MYELOID LEUKAEMIA
     Dosage: BLINDED, INFORMATION WITHHELD
     Dates: start: 20091204, end: 20091207
  4. CYTARABINE [Suspect]
     Indication: ACUTE MYELOID LEUKAEMIA
     Dosage: 2170 MG, QDX5, INTRAVENOUS
     Route: 042
     Dates: start: 20091005, end: 20091009
  5. CYTARABINE [Suspect]
     Indication: ACUTE MYELOID LEUKAEMIA
     Dosage: 2170 MG, QDX5, INTRAVENOUS
     Route: 042
     Dates: start: 20091028, end: 20091101
  6. CYTARABINE [Suspect]
     Indication: ACUTE MYELOID LEUKAEMIA
     Dosage: 2170 MG, QDX5, INTRAVENOUS
     Route: 042
     Dates: start: 20091205, end: 20091208
  7. TYLENOL (PARACETAMOL) [Concomitant]
  8. LORTAB        (PARACETAMOL, PROMETHAZINE HYDROCHLORIDE) [Concomitant]

REACTIONS (6)
  - ACUTE MYELOID LEUKAEMIA RECURRENT [None]
  - BONE MARROW FAILURE [None]
  - FEBRILE NEUTROPENIA [None]
  - LOWER GASTROINTESTINAL HAEMORRHAGE [None]
  - NORMOCHROMIC NORMOCYTIC ANAEMIA [None]
  - OEDEMA PERIPHERAL [None]
